FAERS Safety Report 17582427 (Version 1)
Quarter: 2020Q1

REPORT INFORMATION
  Report Type: Other
  Country: JP (occurrence: JP)
  Receive Date: 20200325
  Receipt Date: 20200325
  Transmission Date: 20200409
  Serious: Yes (Life-Threatening, Other)
  Sender: FDA-Public Use
  Company Number: JP-GEHPL-2020JSU001161AA

PATIENT

DRUGS (10)
  1. OLMESARTAN [Concomitant]
     Active Substance: OLMESARTAN
  2. OMNIPAQUE [Suspect]
     Active Substance: IOHEXOL
     Indication: SCAN WITH CONTRAST
     Dosage: 14 ML, SINGLE
     Route: 042
     Dates: start: 20190718, end: 20190718
  3. PRECIPITATED CALCIUM CARBONATE [Concomitant]
     Active Substance: CALCIUM CARBONATE
  4. OMNIPAQUE [Suspect]
     Active Substance: IOHEXOL
     Indication: COLON CANCER
  5. ARTIST [Concomitant]
     Active Substance: CARVEDILOL
  6. FOSRENOL [Concomitant]
     Active Substance: LANTHANUM CARBONATE
  7. RIONA [Concomitant]
     Active Substance: FERRIC CITRATE ANHYDROUS
  8. ADALAT [Concomitant]
     Active Substance: NIFEDIPINE
  9. NEXIUM I.V. [Concomitant]
     Active Substance: ESOMEPRAZOLE SODIUM
  10. REGPARA [Concomitant]
     Active Substance: CINACALCET HYDROCHLORIDE

REACTIONS (2)
  - Kounis syndrome [Recovered/Resolved]
  - Cardiac arrest [Recovered/Resolved]

NARRATIVE: CASE EVENT DATE: 20190718
